FAERS Safety Report 22966187 (Version 8)
Quarter: 2024Q2

REPORT INFORMATION
  Report Type: Other
  Country: US (occurrence: US)
  Receive Date: 20230921
  Receipt Date: 20240509
  Transmission Date: 20240716
  Serious: Yes (Other)
  Sender: FDA-Public Use
  Company Number: US-UROVANT SCIENCES GMBH-202309-URV-001825

PATIENT
  Age: 61 Year
  Sex: Female

DRUGS (12)
  1. GEMTESA [Suspect]
     Active Substance: VIBEGRON
     Indication: Product used for unknown indication
     Dosage: UNK
     Route: 065
     Dates: start: 2023, end: 202308
  2. TEPROTUMUMAB [Suspect]
     Active Substance: TEPROTUMUMAB
     Indication: Toxic goitre
     Dosage: 701 MG, 90 MINS
     Route: 042
     Dates: start: 20230630
  3. TEPROTUMUMAB [Suspect]
     Active Substance: TEPROTUMUMAB
     Indication: Graves^ disease
     Dosage: 1402 MG, Q3WK, OVER 60 TO 90 MINS
     Route: 042
     Dates: start: 20230721
  4. TEPROTUMUMAB [Suspect]
     Active Substance: TEPROTUMUMAB
     Indication: Endocrine ophthalmopathy
     Dosage: 1402 MG, Q3WK (MOST RECENT INFUSION)
     Route: 042
     Dates: start: 20230811
  5. TEPROTUMUMAB [Suspect]
     Active Substance: TEPROTUMUMAB
     Dosage: 4TH INFUSION
     Route: 042
     Dates: start: 2023
  6. TEPROTUMUMAB [Suspect]
     Active Substance: TEPROTUMUMAB
     Dosage: (MOST RECENT INFUSION)
     Route: 042
     Dates: start: 20230921
  7. TEPROTUMUMAB [Suspect]
     Active Substance: TEPROTUMUMAB
     Dosage: 1402 MG, Q3WK ((20MG/KG)(EIGHTH INFUSION))
     Route: 042
     Dates: start: 20231123
  8. TEPROTUMUMAB [Suspect]
     Active Substance: TEPROTUMUMAB
     Dosage: 20 MILLIGRAM/KILOGRAM (EIGHTH DOSE)
     Route: 065
  9. ERGOCALCIFEROL [Concomitant]
     Active Substance: ERGOCALCIFEROL
     Indication: Product used for unknown indication
     Route: 065
  10. MONTELUKAST SODIUM [Concomitant]
     Active Substance: MONTELUKAST SODIUM
     Indication: Product used for unknown indication
     Route: 048
  11. METHIMAZOLE [Concomitant]
     Active Substance: METHIMAZOLE
     Indication: Product used for unknown indication
     Dosage: 5 MG
     Route: 048
  12. ARTIFICIAL TEARS                   /00222401/ [Concomitant]
     Indication: Product used for unknown indication
     Route: 047

REACTIONS (24)
  - Faecaloma [Unknown]
  - Exophthalmos [Recovering/Resolving]
  - Hypoacusis [Recovering/Resolving]
  - Pain [Unknown]
  - Infusion site pruritus [Recovering/Resolving]
  - Infusion site erythema [Recovering/Resolving]
  - Infusion site rash [Recovering/Resolving]
  - Ear pain [Not Recovered/Not Resolved]
  - Eye colour change [Unknown]
  - Hordeolum [Recovered/Resolved]
  - Malaise [Recovered/Resolved]
  - Feeling abnormal [Recovered/Resolved]
  - Eyelid margin crusting [Unknown]
  - Ocular hyperaemia [Unknown]
  - Eye pain [Recovered/Resolved]
  - Eye swelling [Recovered/Resolved]
  - Vision blurred [Unknown]
  - Symptom recurrence [Unknown]
  - Nausea [Unknown]
  - Diarrhoea [Recovering/Resolving]
  - Ear discomfort [Not Recovered/Not Resolved]
  - Vertigo [Recovered/Resolved]
  - Sleep deficit [Not Recovered/Not Resolved]
  - Eye disorder [Unknown]

NARRATIVE: CASE EVENT DATE: 20230101
